FAERS Safety Report 18087402 (Version 2)
Quarter: 2020Q3

REPORT INFORMATION
  Report Type: Spontaneous
  Country: JP (occurrence: JP)
  Receive Date: 20200729
  Receipt Date: 20200827
  Transmission Date: 20201103
  Serious: Yes (Life-Threatening, Hospitalization, Other)
  Sender: FDA-Public Use
  Company Number: JP-PFIZER INC-2020286293

PATIENT
  Age: 82 Year
  Sex: Female
  Weight: 64.8 kg

DRUGS (15)
  1. ALFACALCIDOL [Concomitant]
     Active Substance: ALFACALCIDOL
     Indication: VITAMIN SUPPLEMENTATION
     Dosage: 1 UG, 1X/DAY
  2. NEXIUM [Concomitant]
     Active Substance: ESOMEPRAZOLE MAGNESIUM
     Indication: GASTRIC ULCER
     Dosage: 20 MG, 1X/DAY
     Dates: start: 20200204
  3. NEXIUM [Concomitant]
     Active Substance: ESOMEPRAZOLE MAGNESIUM
     Indication: DUODENAL ULCER
  4. TELMISARTAN. [Concomitant]
     Active Substance: TELMISARTAN
     Indication: HYPERTENSION
     Dosage: 40 MG, 1X/DAY
     Dates: start: 20110325
  5. WARFARIN [Concomitant]
     Active Substance: WARFARIN
     Indication: ANTICOAGULANT THERAPY
     Dosage: 1 MG, 1X/DAY
     Dates: start: 20150515
  6. BISOPROLOL FUMARATE. [Concomitant]
     Active Substance: BISOPROLOL FUMARATE
     Indication: CARDIAC FAILURE CHRONIC
     Dosage: 2.5 MG, 1X/DAY
     Dates: start: 20130417
  7. AMLODIPINE [Concomitant]
     Active Substance: AMLODIPINE BESYLATE
     Indication: HYPERTENSION
     Dosage: 5 MG, 1X/DAY
     Dates: start: 20120516
  8. EDIROL [Concomitant]
     Active Substance: ELDECALCITOL
     Indication: VITAMIN SUPPLEMENTATION
     Dosage: 0.75 UG, 1X/DAY
     Dates: start: 20191115
  9. TORASEMIDE [Concomitant]
     Active Substance: TORSEMIDE
     Indication: DYSURIA
     Dosage: 2 MG, 1X/DAY
     Dates: start: 20170904
  10. LYRICA [Suspect]
     Active Substance: PREGABALIN
     Indication: NEURALGIA
     Dosage: 150 MG, 2X/DAY
     Route: 048
     Dates: start: 20200409, end: 20200722
  11. AMITIZA [Concomitant]
     Active Substance: LUBIPROSTONE
     Indication: CONSTIPATION
     Dosage: 24 UG, 2X/DAY
     Dates: start: 20200116
  12. TOARASET OD [Concomitant]
     Indication: PAIN
     Dosage: 1 DF, 4X/DAY
     Dates: start: 20200111
  13. MIYA?BM [Concomitant]
     Active Substance: CLOSTRIDIUM BUTYRICUM SPORES STRAIN M-55
     Indication: ABDOMINAL DISCOMFORT
     Dosage: 1 G, 3X/DAY
     Dates: start: 20150815
  14. RISEDRONATE NA [Concomitant]
     Active Substance: RISEDRONATE SODIUM
     Indication: OSTEOPOROSIS
     Dosage: 17.5 MG, WEEKLY
     Dates: start: 20191115
  15. BETAHISTINE MESILATE [Concomitant]
     Active Substance: BETAHISTINE MESILATE
     Indication: DIZZINESS
     Dosage: 6 MG, 3X/DAY
     Dates: start: 20101105

REACTIONS (12)
  - Duodenal ulcer [Unknown]
  - Vomiting [Recovered/Resolved]
  - Malaise [Unknown]
  - Immobilisation syndrome [Not Recovered/Not Resolved]
  - Abdominal symptom [Unknown]
  - Decubitus ulcer [Recovering/Resolving]
  - Constipation [Unknown]
  - Physical deconditioning [Unknown]
  - Nausea [Unknown]
  - Blood albumin decreased [Unknown]
  - Intentional product misuse [Unknown]
  - Blood creatine phosphokinase decreased [Unknown]

NARRATIVE: CASE EVENT DATE: 20200505
